FAERS Safety Report 9737130 (Version 1)
Quarter: 2013Q4

REPORT INFORMATION
  Report Type: Report from Study
  Country: GB (occurrence: GB)
  Receive Date: 20131206
  Receipt Date: 20131206
  Transmission Date: 20140711
  Serious: Yes (Hospitalization)
  Sender: FDA-Public Use
  Company Number: GB-JNJFOC-20131118564

PATIENT
  Age: 60 Year
  Sex: Male
  Weight: 80 kg

DRUGS (6)
  1. ABIRATERONE ACETATE [Suspect]
     Indication: PROSTATE CANCER METASTATIC
     Route: 048
     Dates: start: 20130422, end: 20131127
  2. DECAPEPTYL [Suspect]
     Indication: PROSTATE CANCER METASTATIC
     Route: 030
     Dates: start: 20130301
  3. PREDNISOLONE [Concomitant]
     Route: 048
     Dates: start: 20130422
  4. SIMVASTATIN [Concomitant]
     Route: 048
  5. SOLIFENACIN [Concomitant]
     Route: 048
  6. OMEPRAZOLE [Concomitant]

REACTIONS (1)
  - Liver function test abnormal [Not Recovered/Not Resolved]
